FAERS Safety Report 19802553 (Version 1)
Quarter: 2021Q3

REPORT INFORMATION
  Report Type: Spontaneous
  Country: US (occurrence: US)
  Receive Date: 20210908
  Receipt Date: 20210908
  Transmission Date: 20211014
  Serious: Yes (Life-Threatening, Disabling, Other)
  Sender: FDA-Public Use
  Company Number: None

PATIENT
  Age: 67 Year
  Sex: Male
  Weight: 66.15 kg

DRUGS (5)
  1. DULOXETINE. [Suspect]
     Active Substance: DULOXETINE
     Indication: NEURALGIA
     Dosage: ?          QUANTITY:1 CAPSULE(S);?
     Route: 048
     Dates: start: 20210905, end: 20210907
  2. HYDROCODONE [Concomitant]
     Active Substance: HYDROCODONE
  3. ASPIRIN. [Concomitant]
     Active Substance: ASPIRIN
  4. VITAMIN C [Concomitant]
     Active Substance: ASCORBIC ACID
  5. MULTIPLE VITAMIN [Concomitant]
     Active Substance: VITAMINS

REACTIONS (10)
  - Anxiety [None]
  - Balance disorder [None]
  - Asthenia [None]
  - Depression [None]
  - Hypersomnia [None]
  - Nervousness [None]
  - Tremor [None]
  - Respiratory rate decreased [None]
  - Decreased appetite [None]
  - Chest discomfort [None]

NARRATIVE: CASE EVENT DATE: 20210906
